FAERS Safety Report 7347126-0 (Version None)
Quarter: 2011Q1

REPORT INFORMATION
  Report Type: 
  Country: None (occurrence: None)
  Receive Date: 20110311
  Receipt Date: 20110228
  Transmission Date: 20110831
  Serious: Yes (Hospitalization, Other)
  Sender: FDA-Public Use
  Company Number: PHHY2011JP17614

PATIENT
  Age: 75 Year
  Sex: Female

DRUGS (3)
  1. METHOTREXATE [Suspect]
     Indication: RHEUMATOID ARTHRITIS
     Dosage: 6 MG/WEEK
  2. NSAID'S [Concomitant]
     Indication: RHEUMATOID ARTHRITIS
  3. PREDNISOLONE [Concomitant]
     Indication: RHEUMATOID ARTHRITIS
     Dosage: 40 MG FOR 3 DAYS

REACTIONS (19)
  - HEPATOSPLENOMEGALY [None]
  - PLEOCYTOSIS [None]
  - SPINAL COMPRESSION FRACTURE [None]
  - CONVULSION [None]
  - LYMPHOCYTIC INFILTRATION [None]
  - RASH [None]
  - C-REACTIVE PROTEIN INCREASED [None]
  - LYMPHOCYTOSIS [None]
  - TONSILLITIS [None]
  - PANCYTOPENIA [None]
  - BONE MARROW FAILURE [None]
  - PERIPHERAL T-CELL LYMPHOMA UNSPECIFIED [None]
  - LYMPHADENOPATHY [None]
  - FATIGUE [None]
  - EPSTEIN-BARR VIRUS INFECTION [None]
  - PYREXIA [None]
  - INFECTIOUS MONONUCLEOSIS [None]
  - ENCEPHALITIS [None]
  - ALTERED STATE OF CONSCIOUSNESS [None]
